FAERS Safety Report 12763375 (Version 6)
Quarter: 2017Q1

REPORT INFORMATION
  Report Type: Report from Study
  Country: CA (occurrence: CA)
  Receive Date: 20160920
  Receipt Date: 20170302
  Transmission Date: 20170428
  Serious: Yes (Other)
  Sender: FDA-Public Use
  Company Number: CA-JNJFOC-20160911288

PATIENT
  Age: 80 Year
  Sex: Male

DRUGS (3)
  1. IMBRUVICA [Suspect]
     Active Substance: IBRUTINIB
     Indication: WALDENSTROM^S MACROGLOBULINAEMIA
     Route: 048
     Dates: start: 20160921
  2. IMBRUVICA [Suspect]
     Active Substance: IBRUTINIB
     Indication: WALDENSTROM^S MACROGLOBULINAEMIA
     Route: 048
     Dates: start: 20160816
  3. IMBRUVICA [Suspect]
     Active Substance: IBRUTINIB
     Indication: WALDENSTROM^S MACROGLOBULINAEMIA
     Route: 048
     Dates: start: 20161114

REACTIONS (10)
  - Off label use [Unknown]
  - Blood glucose decreased [Recovered/Resolved]
  - Plasmapheresis [Recovered/Resolved]
  - Rash macular [Not Recovered/Not Resolved]
  - Erythema [Recovered/Resolved]
  - Decreased appetite [Unknown]
  - Product use issue [Unknown]
  - Skin lesion [Not Recovered/Not Resolved]
  - Petechiae [Recovered/Resolved]
  - Weight decreased [Unknown]

NARRATIVE: CASE EVENT DATE: 20160816
